FAERS Safety Report 21760532 (Version 1)
Quarter: 2022Q4

REPORT INFORMATION
  Report Type: Spontaneous
  Country: US (occurrence: None)
  Receive Date: 20221220
  Receipt Date: 20221220
  Transmission Date: 20230113
  Serious: No
  Sender: FDA-Public Use
  Company Number: None

PATIENT
  Age: 56 Year
  Sex: Female
  Weight: 97.39 kg

DRUGS (16)
  1. VERZENIO [Suspect]
     Active Substance: ABEMACICLIB
     Indication: Breast cancer female
     Dosage: 100MG Q 12 HOURS ORAL?
     Route: 048
  2. COMPAZINE [Concomitant]
     Active Substance: PROCHLORPERAZINE MALEATE
  3. FUROSEMIDE [Concomitant]
     Active Substance: FUROSEMIDE
  4. IMODIUM [Concomitant]
     Active Substance: LOPERAMIDE HYDROCHLORIDE
  5. LETROZOLE [Concomitant]
     Active Substance: LETROZOLE
  6. LOMOTIL [Concomitant]
     Active Substance: ATROPINE SULFATE\DIPHENOXYLATE HYDROCHLORIDE
  7. LORATADINE [Concomitant]
     Active Substance: LORATADINE
  8. LOSARTAN [Concomitant]
     Active Substance: LOSARTAN
  9. POTASSIUM [Concomitant]
     Active Substance: POTASSIUM
  10. VITAMINS [Concomitant]
     Active Substance: VITAMINS
  11. SIMVASTATIN [Concomitant]
     Active Substance: SIMVASTATIN
  12. SPIRIVA [Concomitant]
     Active Substance: TIOTROPIUM BROMIDE MONOHYDRATE
  13. VITAMIN C [Concomitant]
     Active Substance: ASCORBIC ACID
  14. VITAMIN D3 [Concomitant]
     Active Substance: CHOLECALCIFEROL
  15. ZINC [Concomitant]
     Active Substance: ZINC
  16. ZOFRAN [Suspect]
     Active Substance: ONDANSETRON HYDROCHLORIDE

REACTIONS (1)
  - Pneumonia [None]
